FAERS Safety Report 14423570 (Version 1)
Quarter: 2018Q1

REPORT INFORMATION
  Report Type: Spontaneous
  Country: US (occurrence: US)
  Receive Date: 20180123
  Receipt Date: 20180123
  Transmission Date: 20180509
  Serious: No
  Sender: FDA-Public Use
  Company Number: US-PFIZER INC-2018026714

PATIENT
  Age: 25 Year
  Sex: Female

DRUGS (5)
  1. TRIAMCINOLONE [Suspect]
     Active Substance: TRIAMCINOLONE
     Dosage: UNK
  2. PANOXYL [Suspect]
     Active Substance: BENZOYL PEROXIDE
     Dosage: UNK
  3. DOXYCYCLINE HYCLATE. [Suspect]
     Active Substance: DOXYCYCLINE HYCLATE
     Dosage: UNK
  4. FLUOCINONIDE. [Suspect]
     Active Substance: FLUOCINONIDE
     Dosage: UNK
  5. BENZOYL PEROXIDE. [Suspect]
     Active Substance: BENZOYL PEROXIDE
     Dosage: UNK

REACTIONS (1)
  - Drug hypersensitivity [Unknown]
